FAERS Safety Report 15496491 (Version 1)
Quarter: 2018Q4

REPORT INFORMATION
  Report Type: Spontaneous
  Country: US (occurrence: US)
  Receive Date: 20181012
  Receipt Date: 20181012
  Transmission Date: 20190205
  Serious: No
  Sender: FDA-Public Use
  Company Number: US-JNJFOC-20180919573

PATIENT
  Sex: Male

DRUGS (4)
  1. CABOMETYX [Suspect]
     Active Substance: CABOZANTINIB S-MALATE
     Indication: RENAL CELL CARCINOMA
     Route: 048
     Dates: start: 2018
  2. XARELTO [Suspect]
     Active Substance: RIVAROXABAN
     Indication: PRODUCT USED FOR UNKNOWN INDICATION
     Route: 048
  3. CABOMETYX [Suspect]
     Active Substance: CABOZANTINIB S-MALATE
     Indication: RENAL CELL CARCINOMA
     Dosage: TUESDAY, THURSDAY, SATURDAY AND SUNDAY
     Route: 048
     Dates: start: 201802, end: 201802
  4. CABOMETYX [Suspect]
     Active Substance: CABOZANTINIB S-MALATE
     Indication: RENAL CELL CARCINOMA
     Route: 048
     Dates: start: 201802, end: 2018

REACTIONS (6)
  - Dizziness [Unknown]
  - Lip swelling [Recovered/Resolved]
  - Stomatitis [Unknown]
  - Blood blister [Recovered/Resolved]
  - Fatigue [Unknown]
  - Skin lesion [Unknown]

NARRATIVE: CASE EVENT DATE: 2018
